FAERS Safety Report 24396336 (Version 1)
Quarter: 2024Q4

REPORT INFORMATION
  Report Type: Spontaneous
  Country: US (occurrence: US)
  Receive Date: 20241004
  Receipt Date: 20241004
  Transmission Date: 20250115
  Serious: No
  Sender: LEO PHARM
  Company Number: US-LEO Pharma-373964

PATIENT
  Age: 70 Year
  Sex: Female

DRUGS (4)
  1. PROTOPIC [Suspect]
     Active Substance: TACROLIMUS
     Indication: Pemphigus
  2. CLOBETASOL [Concomitant]
     Active Substance: CLOBETASOL
     Indication: Pemphigus
     Route: 003
  3. PREDNISONE [Concomitant]
     Active Substance: PREDNISONE
     Indication: Pemphigus
  4. RITUXIMAB [Concomitant]
     Active Substance: RITUXIMAB
     Indication: Pemphigus
     Dosage: 2 DOSES OF RITUXIMAB 1000 MG 2 WEEKS APART

REACTIONS (2)
  - Drug effective for unapproved indication [Unknown]
  - Off label use [Unknown]
